FAERS Safety Report 21237579 (Version 5)
Quarter: 2023Q1

REPORT INFORMATION
  Report Type: Report from Study
  Country: US (occurrence: US)
  Receive Date: 20220822
  Receipt Date: 20230201
  Transmission Date: 20230417
  Serious: Yes (Other)
  Sender: FDA-Public Use
  Company Number: US-ABBVIE-22K-163-4511923-00

PATIENT
  Sex: Male
  Weight: 77.11 kg

DRUGS (24)
  1. IMBRUVICA [Suspect]
     Active Substance: IBRUTINIB
     Indication: Chronic lymphocytic leukaemia
     Dosage: EVERY MORNING
     Route: 048
     Dates: start: 201807
  2. IMBRUVICA [Suspect]
     Active Substance: IBRUTINIB
     Indication: Chronic lymphocytic leukaemia
     Route: 048
     Dates: start: 201609
  3. Adefovir 10 MG [Concomitant]
     Indication: Chronic hepatitis B
     Route: 048
  4. Pacerone 200 MG [Concomitant]
     Indication: Product used for unknown indication
     Route: 048
  5. CALCIUM CITRATE\VITAMIN D [Concomitant]
     Active Substance: CALCIUM CITRATE\VITAMIN D
     Indication: Product used for unknown indication
     Dosage: 315-200 MG-UNIT PER TABLET - TAKE 1 TABLET BY MOUTH
  6. LISINOPRIL [Concomitant]
     Active Substance: LISINOPRIL
     Indication: Hypertension
     Dosage: 5 MG TABLET- TAKE 1 TABLET (5 MG TOTAL) BY MOUTH DAILY, TAKE AT BEDTIME
     Route: 048
  7. Lopressor 50 MG [Concomitant]
     Indication: Product used for unknown indication
     Dosage: 50MG TABLET- TAKE 1 TABLET (50 MG TOTAL) BY MOUTH 2 (TWO) TIMES A DAY
     Route: 048
  8. Prograf 0.5 mg [Concomitant]
     Indication: Liver transplant
     Dosage: 0.5MG CAPSULE -TAKE 1 CAPSULE (0.5 MG TOTAL) BY MOUTH 2 (TWO) TIMES A DAY
     Route: 048
  9. PreserVisionn AREDS [Concomitant]
     Indication: Product used for unknown indication
     Dosage: 1 CAP DAILY
  10. ELIQUIS [Concomitant]
     Active Substance: APIXABAN
     Indication: Product used for unknown indication
     Dosage: 2.5MG TABLET - TAKE 1 TABLET (2.5 MG TOTAL) BY MOUTH 2 (TWO) TIMES A DAY
     Route: 048
  11. Artificial Tears 1.4 % [Concomitant]
     Indication: Product used for unknown indication
     Dosage: 1.4% OPHTHALMIC SOLUTION - ADMINISTER 1 DROP INTO BOTH EYES 4 (FOUR) TIMES A DAY AS NEEDED FOR DR...
  12. Vitamin b 12 500 mcg [Concomitant]
     Indication: Product used for unknown indication
     Dosage: 500MCG TABLET- TAKE 500 MCG BY MOUTH EVERY MORNING
     Route: 048
  13. LOFIBRA 160 MG [Concomitant]
     Indication: Product used for unknown indication
     Dosage: 160MG TABLET - TAKE 0.5 TABLETS (80 MG TOTAL) BY MOUTH NIGHTLY
     Route: 048
  14. PROSCAR 5 MG [Concomitant]
     Indication: Product used for unknown indication
     Dosage: 5MG TABLET- TAKE 1 TABLET (5 MG TOTAL) BY MOUTH DAILY.
     Route: 048
  15. Novolog 100 UNIT/ML [Concomitant]
     Indication: Product used for unknown indication
     Dosage: TIME INTERVAL: 0.33333333 DAYS: INJECT 10 UNITS UNDER THE SKIN 3 (THREE) TIMES A DAY
  16. EPIVIR 100 MG [Concomitant]
     Indication: Product used for unknown indication
     Dosage: TAKE 1 TABLET (100 MG TOTAL) BY MOUTH EVERY OTHER
     Route: 048
  17. SYNTHROID [Concomitant]
     Active Substance: LEVOTHYROXINE SODIUM
     Indication: Thyroid disorder
     Dosage: TAKE 1 TABLET (50 MCG TOTAL) BY MOUTH BEFORE BREAKFAST
     Route: 048
  18. FLOMAX 0.4 mg [Concomitant]
     Indication: Product used for unknown indication
     Dosage: 0.4MG CAPSULE - TAKE 1 CAPSULE (0.4 MG TOTAL) BY MOUTH EVERY MORNING.
     Route: 048
  19. SIMPONI ARIA [Concomitant]
     Active Substance: GOLIMUMAB
     Indication: Product used for unknown indication
     Dosage: 50MG/4ML SOLUTION
  20. Miralax 17 g [Concomitant]
     Indication: Product used for unknown indication
     Dosage: 17G PACKET- TAKE 17 G BY MOUTH DAILY
     Route: 048
  21. LEVEMIR 100 unit/mL [Concomitant]
     Indication: Product used for unknown indication
     Dosage: INJECT 12 UNITS UNDER THE SKIN NIGHTLY
  22. INSULIN NOS [Concomitant]
     Active Substance: INSULIN NOS
     Indication: Product used for unknown indication
     Dosage: SYRINGE NEEDLE U-100 30G X 1/2^ 0.3 ML USE TO INJECT 5 UNITS OF INSULIN
     Route: 058
  23. ATROVENT 0.03 % [Concomitant]
     Indication: Product used for unknown indication
     Dosage: ADMINISTER 2 SPRAYS INTO EACH NOSTRIL EVERY 12 (TWELVE) HOURS
     Route: 045
  24. KEFLEX [Concomitant]
     Active Substance: CEPHALEXIN
     Indication: Skin infection
     Dosage: TIME INTERVAL: 0.33333333 DAYS: TAKE 1 CAPSULE (500 MG TOTAL) BY MOUTH 3 (THREE) TIMES A DAY FOR ...
     Route: 048

REACTIONS (3)
  - Cataract [Unknown]
  - Localised infection [Unknown]
  - Blood creatinine increased [Unknown]

NARRATIVE: CASE EVENT DATE: 20020101
